FAERS Safety Report 6397288-7 (Version None)
Quarter: 2009Q4

REPORT INFORMATION
  Report Type: 
  Country: None (occurrence: None)
  Receive Date: 20091012
  Receipt Date: 20090929
  Transmission Date: 20100525
  Serious: No
  Sender: FDA-Public Use
  Company Number: FR-ELI_LILLY_AND_COMPANY-FR200707000892

PATIENT
  Age: 78 Year
  Sex: Female
  Weight: 49 kg

DRUGS (5)
  1. FORTEO [Suspect]
     Indication: OSTEOPOROSIS
     Dosage: 20 UG, DAILY (1/D)
     Route: 058
     Dates: start: 20070416, end: 20070629
  2. FORTEO [Suspect]
     Dosage: 20 UG, DAILY (1/D)
     Route: 058
     Dates: start: 20070701
  3. STRUCTUM [Concomitant]
     Indication: OSTEOARTHRITIS
  4. TANAKAN [Concomitant]
  5. KARDEGIC [Concomitant]

REACTIONS (1)
  - NO ADVERSE EVENT [None]
